FAERS Safety Report 9519012 (Version 2)
Quarter: 2013Q4

REPORT INFORMATION
  Report Type: Spontaneous
  Country: CA (occurrence: CA)
  Receive Date: 20130912
  Receipt Date: 20131127
  Transmission Date: 20140711
  Serious: Yes (Other)
  Sender: FDA-Public Use
  Company Number: CA-VERTEX PHARMACEUTICALS INC-2013-009469

PATIENT
  Sex: Male

DRUGS (4)
  1. INCIVEK [Suspect]
     Indication: HEPATITIS C
     Dosage: 3 DF, TID
     Dates: start: 20130624, end: 20130903
  2. INTERFERON [Suspect]
     Indication: HEPATITIS C
     Dosage: 180 ?G, QW
     Dates: start: 20130624
  3. RIBAVIRIN [Suspect]
     Indication: HEPATITIS C
     Dosage: 3 DF, BID
     Dates: start: 20130624
  4. RIBAVIRIN [Suspect]
     Dosage: 3 DF, QD

REACTIONS (3)
  - Drug reaction with eosinophilia and systemic symptoms [Not Recovered/Not Resolved]
  - Abdominal distension [Not Recovered/Not Resolved]
  - White blood cell count decreased [Not Recovered/Not Resolved]
